APPROVED DRUG PRODUCT: LAX-LYTE WITH FLAVOR PACKS
Active Ingredient: POLYETHYLENE GLYCOL 3350; POTASSIUM CHLORIDE; SODIUM BICARBONATE; SODIUM CHLORIDE
Strength: 420GM/BOT;1.48GM/BOT;5.72GM/BOT;11.2GM/BOT
Dosage Form/Route: FOR SOLUTION;ORAL
Application: A079232 | Product #001
Applicant: L PERRIGO CO
Approved: Feb 25, 2010 | RLD: No | RS: No | Type: DISCN